FAERS Safety Report 10086140 (Version 1)
Quarter: 2014Q2

REPORT INFORMATION
  Report Type: Spontaneous
  Country: US (occurrence: US)
  Receive Date: 20140418
  Receipt Date: 20140418
  Transmission Date: 20141212
  Serious: Yes (Hospitalization)
  Sender: FDA-Public Use
  Company Number: US-SA-2014SA048481

PATIENT
  Age: 18 Year
  Sex: Male
  Weight: 110 kg

DRUGS (3)
  1. FABRAZYME [Suspect]
     Indication: FABRY^S DISEASE
     Route: 042
     Dates: start: 20090616
  2. LISINOPRIL [Concomitant]
  3. LISINOPRIL [Concomitant]

REACTIONS (3)
  - Transient ischaemic attack [Unknown]
  - Hypoaesthesia [Recovered/Resolved]
  - Asthenia [Recovered/Resolved]
